FAERS Safety Report 6289226-2 (Version None)
Quarter: 2009Q3

REPORT INFORMATION
  Report Type: 
  Country: None (occurrence: None)
  Receive Date: 20090729
  Receipt Date: 20090729
  Transmission Date: 20100115
  Serious: No
  Sender: FDA-Public Use
  Company Number: None

PATIENT
  Age: 41 Year
  Sex: Female
  Weight: 82.5547 kg

DRUGS (1)
  1. ZOMIG [Suspect]
     Indication: MIGRAINE
     Dosage: 5 MG SL
     Route: 060
     Dates: start: 20090725, end: 20090725

REACTIONS (2)
  - ABNORMAL DREAMS [None]
  - PAIN IN JAW [None]
